FAERS Safety Report 8458034-6 (Version None)
Quarter: 2012Q2

REPORT INFORMATION
  Report Type: 
  Country: None (occurrence: None)
  Receive Date: 20120622
  Receipt Date: 20120618
  Transmission Date: 20120825
  Serious: Yes (Death)
  Sender: FDA-Public Use
  Company Number: JP-JNJFOC-20120606490

PATIENT
  Sex: Male

DRUGS (22)
  1. ZIAGEN [Concomitant]
     Indication: KAPOSI'S SARCOMA AIDS RELATED
     Route: 048
     Dates: start: 20111024, end: 20111028
  2. TARGOCID [Concomitant]
     Route: 042
     Dates: start: 20110930, end: 20111023
  3. EPZICOM [Concomitant]
     Indication: KAPOSI'S SARCOMA AIDS RELATED
     Route: 048
     Dates: start: 20110604, end: 20111023
  4. ISONIAZID [Concomitant]
     Route: 048
     Dates: start: 20110509, end: 20111023
  5. MYCOBUTIN [Concomitant]
     Route: 048
     Dates: start: 20110902, end: 20111023
  6. PREZISTA [Concomitant]
     Indication: KAPOSI'S SARCOMA AIDS RELATED
     Route: 048
     Dates: start: 20110604, end: 20111017
  7. DOBUTAMINE HCL [Concomitant]
     Dosage: 200-1050 MG
     Route: 042
     Dates: start: 20111024, end: 20111028
  8. KALETRA [Concomitant]
     Indication: KAPOSI'S SARCOMA AIDS RELATED
     Route: 048
     Dates: start: 20111018, end: 20111023
  9. FUNGUARD [Concomitant]
     Route: 042
     Dates: start: 20111016, end: 20111027
  10. NEUTROGIN [Concomitant]
     Dosage: 300 MG-500 MG
     Route: 065
     Dates: start: 20111024, end: 20111028
  11. NEUTROGIN [Concomitant]
     Dosage: 300 MG-500 MG
     Route: 065
     Dates: start: 20111018, end: 20111018
  12. FOSCAVIR [Concomitant]
     Dosage: 300 MG-500 MG
     Route: 042
     Dates: start: 20110929, end: 20111022
  13. NORVIR [Concomitant]
     Indication: KAPOSI'S SARCOMA AIDS RELATED
     Route: 048
     Dates: start: 20110604, end: 20111017
  14. ZITHROMAX [Concomitant]
     Indication: KAPOSI'S SARCOMA AIDS RELATED
     Route: 048
     Dates: start: 20110526, end: 20111024
  15. VITAMIN B12 [Concomitant]
     Route: 048
     Dates: start: 20110721, end: 20111117
  16. LASIX [Concomitant]
     Dosage: 300 MG-500 MG
     Route: 042
     Dates: start: 20111020, end: 20111025
  17. EPIVIR [Concomitant]
     Indication: KAPOSI'S SARCOMA AIDS RELATED
     Route: 048
     Dates: start: 20111024, end: 20111028
  18. LEVOFLOXACIN [Concomitant]
     Route: 048
     Dates: start: 20110902, end: 20111023
  19. DIPRIVAN [Concomitant]
     Dosage: 300 MG-500 MG
     Route: 042
     Dates: start: 20111017, end: 20111029
  20. DOXORUBICIN HCL [Suspect]
     Indication: KAPOSI'S SARCOMA AIDS RELATED
     Dosage: CYCLE 1
     Route: 042
     Dates: start: 20111017, end: 20111017
  21. ISENTRESS [Concomitant]
     Indication: KAPOSI'S SARCOMA AIDS RELATED
     Route: 048
     Dates: start: 20111024, end: 20111028
  22. LYRICA [Concomitant]
     Route: 048
     Dates: start: 20110729, end: 20111017

REACTIONS (5)
  - RENAL FAILURE ACUTE [None]
  - PANCYTOPENIA [None]
  - RESPIRATORY DISORDER [None]
  - SUBARACHNOID HAEMORRHAGE [None]
  - BLOOD PRESSURE DECREASED [None]
